FAERS Safety Report 5444259-0 (Version None)
Quarter: 2007Q3

REPORT INFORMATION
  Report Type: 
  Country: None (occurrence: None)
  Receive Date: 20070906
  Receipt Date: 20070828
  Transmission Date: 20080115
  Serious: Yes (Disabling)
  Sender: FDA-Public Use
  Company Number: HQWYE896629AUG07

PATIENT
  Sex: Female

DRUGS (3)
  1. EFFEXOR XR [Suspect]
     Indication: DEPRESSION
     Route: 048
     Dates: start: 20060101, end: 20070401
  2. EFFEXOR XR [Suspect]
     Route: 048
     Dates: start: 20070401, end: 20070601
  3. EFFEXOR XR [Suspect]
     Route: 048
     Dates: start: 20070601

REACTIONS (7)
  - ACTIVITIES OF DAILY LIVING IMPAIRED [None]
  - ANORGASMIA [None]
  - DRUG EFFECT DECREASED [None]
  - DRUG WITHDRAWAL SYNDROME [None]
  - MENTAL IMPAIRMENT [None]
  - PARAESTHESIA [None]
  - VISUAL DISTURBANCE [None]
